FAERS Safety Report 9693787 (Version 2)
Quarter: 2013Q4

REPORT INFORMATION
  Report Type: Spontaneous
  Country: NO (occurrence: NO)
  Receive Date: 20131118
  Receipt Date: 20131120
  Transmission Date: 20140711
  Serious: Yes (Other)
  Sender: FDA-Public Use
  Company Number: NO-PFIZER INC-2013326367

PATIENT
  Age: 56 Year
  Sex: Male
  Weight: 96 kg

DRUGS (3)
  1. NEURONTIN [Suspect]
     Indication: PAIN
     Dosage: 800 MG, 3X/DAY
     Dates: start: 20111101, end: 20120930
  2. TRAMADOL ^RATIOPHARM^ [Concomitant]
     Indication: PAIN
     Dates: start: 20121101, end: 20130712
  3. NEBIDO [Concomitant]
     Dates: start: 20090901, end: 20131104

REACTIONS (7)
  - Anxiety [Recovered/Resolved]
  - Thinking abnormal [Recovered/Resolved]
  - Affect lability [Recovered/Resolved]
  - Nervousness [Recovered/Resolved]
  - Hostility [Recovered/Resolved]
  - Depression [Recovered/Resolved]
  - Confusional state [Recovered/Resolved]
